FAERS Safety Report 14072191 (Version 2)
Quarter: 2019Q4

REPORT INFORMATION
  Report Type: Spontaneous
  Country: US (occurrence: US)
  Receive Date: 20171010
  Receipt Date: 20191205
  Transmission Date: 20200122
  Serious: Yes (Other)
  Sender: FDA-Public Use
  Company Number: US-PFIZER INC-2017436625

PATIENT
  Age: 72 Year
  Sex: Female

DRUGS (3)
  1. ZARONTIN [Suspect]
     Active Substance: ETHOSUXIMIDE
     Dosage: 250 MG, UNK
  2. ZARONTIN [Suspect]
     Active Substance: ETHOSUXIMIDE
     Dosage: 5 DF, DAILY
  3. DILANTIN [Concomitant]
     Active Substance: PHENYTOIN
     Dosage: UNK

REACTIONS (1)
  - Accident [Unknown]
